FAERS Safety Report 5833106-0 (Version None)
Quarter: 2008Q3

REPORT INFORMATION
  Report Type: 
  Country: None (occurrence: None)
  Receive Date: 20080805
  Receipt Date: 20080728
  Transmission Date: 20090109
  Serious: Yes (Death, Hospitalization, Other)
  Sender: FDA-Public Use
  Company Number: US-ASTRAZENECA-2006UW21577

PATIENT
  Age: 27559 Day
  Sex: Male
  Weight: 81.6 kg

DRUGS (2)
  1. SEROQUEL [Suspect]
     Indication: DEMENTIA
     Route: 048
     Dates: start: 20050605, end: 20051126
  2. EXELON [Concomitant]
     Dates: start: 20050609, end: 20051126

REACTIONS (10)
  - CHRONIC OBSTRUCTIVE PULMONARY DISEASE [None]
  - DIABETES MELLITUS [None]
  - DIABETIC COMA [None]
  - DIABETIC KETOACIDOSIS [None]
  - ENDOCARDIAL FIBROSIS [None]
  - LEG AMPUTATION [None]
  - OEDEMA [None]
  - RENAL DISORDER [None]
  - RENAL FAILURE CHRONIC [None]
  - SPINAL DISORDER [None]
